FAERS Safety Report 13593226 (Version 1)
Quarter: 2017Q2

REPORT INFORMATION
  Report Type: Spontaneous
  Country: US (occurrence: US)
  Receive Date: 20170530
  Receipt Date: 20170530
  Transmission Date: 20170830
  Serious: Yes (Life-Threatening, Hospitalization)
  Sender: FDA-Public Use
  Company Number: US-UNITED THERAPEUTICS-UNT-2017-006613

PATIENT
  Age: 52 Year
  Sex: Male
  Weight: 102.95 kg

DRUGS (3)
  1. VELETRI [Concomitant]
     Active Substance: EPOPROSTENOL
     Indication: PRODUCT USED FOR UNKNOWN INDICATION
  2. SILDENAFIL CITRATE. [Concomitant]
     Active Substance: SILDENAFIL CITRATE
     Indication: PRODUCT USED FOR UNKNOWN INDICATION
  3. TYVASO [Suspect]
     Active Substance: TREPROSTINIL
     Indication: PULMONARY ARTERIAL HYPERTENSION
     Dosage: 18-54 MICROGRAMS, QID
     Dates: start: 20170414

REACTIONS (5)
  - Cardiac arrest [Unknown]
  - Cardiac disorder [Unknown]
  - Renal disorder [Unknown]
  - Pulmonary embolism [Unknown]
  - Lung disorder [Unknown]

NARRATIVE: CASE EVENT DATE: 20170429
